FAERS Safety Report 7335036-4 (Version None)
Quarter: 2011Q1

REPORT INFORMATION
  Report Type: 
  Country: None (occurrence: None)
  Receive Date: 20110302
  Receipt Date: 20110302
  Transmission Date: 20110831
  Serious: Yes (Other)
  Sender: FDA-Public Use
  Company Number: None

PATIENT
  Sex: Female
  Weight: 57.1532 kg

DRUGS (1)
  1. CITALOPRAM HYDROBROMIDE [Suspect]
     Indication: DEPRESSION
     Dosage: 20 MG 2X/DAY MOUTH
     Route: 048
     Dates: start: 20110109, end: 20110119

REACTIONS (13)
  - DEPRESSION [None]
  - ARTHRALGIA [None]
  - SUICIDAL IDEATION [None]
  - ABDOMINAL PAIN [None]
  - BEDRIDDEN [None]
  - MIGRAINE [None]
  - FATIGUE [None]
  - ANXIETY [None]
  - DIZZINESS [None]
  - MYALGIA [None]
  - VERTIGO [None]
  - AGITATION [None]
  - NERVOUSNESS [None]
